FAERS Safety Report 4681947-8 (Version None)
Quarter: 2005Q2

REPORT INFORMATION
  Report Type: 
  Country: None (occurrence: None)
  Receive Date: 20050602
  Receipt Date: 20050521
  Transmission Date: 20051028
  Serious: Yes (Other)
  Sender: FDA-Public Use
  Company Number: 2005078594

PATIENT
  Sex: Female

DRUGS (3)
  1. ZOLOFT [Suspect]
     Indication: DEPRESSION
     Dosage: UNK (50 MG, UNKNOWN), UNKNNOWN
     Dates: start: 19990701
  2. TAMOXIFEN CITRATE [Concomitant]
  3. ALL OTHER THERAPEUTIC PRODUCTS [Concomitant]

REACTIONS (5)
  - BREAST CANCER FEMALE [None]
  - CHILLS [None]
  - DISTURBANCE IN ATTENTION [None]
  - MOVEMENT DISORDER [None]
  - SALIVARY HYPERSECRETION [None]
